FAERS Safety Report 22225677 (Version 1)
Quarter: 2023Q2

REPORT INFORMATION
  Report Type: Spontaneous
  Country: FR (occurrence: FR)
  Receive Date: 20230418
  Receipt Date: 20230418
  Transmission Date: 20230721
  Serious: Yes (Hospitalization, Other)
  Sender: FDA-Public Use
  Company Number: FR-BRISTOL-MYERS SQUIBB COMPANY-2023-044517

PATIENT
  Age: 74 Year
  Sex: Male
  Weight: 86 kg

DRUGS (9)
  1. OPDIVO [Suspect]
     Active Substance: NIVOLUMAB
     Indication: Oesophageal adenocarcinoma
     Dosage: 6 COURSES
     Route: 042
     Dates: start: 202212, end: 20230210
  2. BISOPROLOL [Concomitant]
     Active Substance: BISOPROLOL
     Indication: Product used for unknown indication
     Dosage: BISOPROLOL, 1.25 MG PER DAY SINCE UNKNOWN DATE
  3. FUROSEMIDE [Concomitant]
     Active Substance: FUROSEMIDE
     Indication: Product used for unknown indication
     Dosage: FUROSEMIDE, 125 MG PER DAY SINCE UNKNOWN DATE
  4. METFORMIN [Concomitant]
     Active Substance: METFORMIN HYDROCHLORIDE
     Indication: Product used for unknown indication
     Dosage: METFORMINE, 1400 MG PER DAY SINCE UNKNOWN DATE
  5. DAPAGLIFLOZIN [Concomitant]
     Active Substance: DAPAGLIFLOZIN
     Indication: Product used for unknown indication
     Dosage: FORXIGA, 10 MG PER DAY SINCE UNKNOWN DATE
  6. FEBUXOSTAT [Concomitant]
     Active Substance: FEBUXOSTAT
     Indication: Product used for unknown indication
     Dosage: FEBOXOSTAT, 40 MG PER DAY SINCE UNKNOWN DATE
  7. MIRTAZAPINE [Concomitant]
     Active Substance: MIRTAZAPINE
     Indication: Product used for unknown indication
     Dosage: MIRTAZAPINE, 15 MG PER DAY SINCE UNKNOWN DATE
  8. ASPIRIN\CLOPIDOGREL [Concomitant]
     Active Substance: ASPIRIN\CLOPIDOGREL
     Indication: Product used for unknown indication
     Dosage: DUOPLAVIN, 75/75 MG PER DAY SINCE UNKNOWN DATE
  9. FLUOROURACIL\LEUCOVORIN CALCIUM\OXALIPLATIN [Concomitant]
     Active Substance: FLUOROURACIL\LEUCOVORIN CALCIUM\OXALIPLATIN
     Indication: Oesophageal adenocarcinoma

REACTIONS (2)
  - Malignant neoplasm progression [Unknown]
  - Dysphagia [Unknown]
